FAERS Safety Report 14118540 (Version 1)
Quarter: 2017Q4

REPORT INFORMATION
  Report Type: Spontaneous
  Country: US (occurrence: US)
  Receive Date: 20171023
  Receipt Date: 20171023
  Transmission Date: 20180321
  Serious: No
  Sender: FDA-Public Use
  Company Number: US-ALLERGAN-1725108US

PATIENT
  Age: 24 Year
  Sex: Female

DRUGS (1)
  1. LINZESS [Suspect]
     Active Substance: LINACLOTIDE
     Indication: IRRITABLE BOWEL SYNDROME
     Dosage: UNK UNK, QD
     Route: 048
     Dates: start: 201705

REACTIONS (5)
  - Abdominal pain upper [Recovered/Resolved]
  - Irritable bowel syndrome [Recovered/Resolved]
  - Abdominal distension [Recovered/Resolved]
  - Drug dose omission [Unknown]
  - Constipation [Recovered/Resolved]

NARRATIVE: CASE EVENT DATE: 201706
